FAERS Safety Report 12994541 (Version 1)
Quarter: 2016Q4

REPORT INFORMATION
  Report Type: Spontaneous
  Country: FR (occurrence: FR)
  Receive Date: 20161202
  Receipt Date: 20161202
  Transmission Date: 20170207
  Serious: Yes (Other)
  Sender: FDA-Public Use
  Company Number: PHHY2016FR162641

PATIENT
  Age: 73 Year
  Sex: Male

DRUGS (2)
  1. TRILEPTAL [Suspect]
     Active Substance: OXCARBAZEPINE
     Indication: PROCTALGIA
     Dosage: 1 ML, QD
     Route: 065
     Dates: start: 20161119
  2. OFLOCET [Interacting]
     Active Substance: OFLOXACIN
     Indication: PENILE BURNING SENSATION
     Dosage: UNK
     Route: 065

REACTIONS (6)
  - Urinary tract infection [Recovering/Resolving]
  - Penile pain [Recovered/Resolved]
  - Drug interaction [Recovering/Resolving]
  - Penile pain [Recovering/Resolving]
  - Off label use [Unknown]
  - Dysuria [Recovering/Resolving]

NARRATIVE: CASE EVENT DATE: 20161120
